FAERS Safety Report 21978271 (Version 1)
Quarter: 2023Q1

REPORT INFORMATION
  Report Type: Spontaneous
  Country: US (occurrence: None)
  Receive Date: 20230209
  Receipt Date: 20230209
  Transmission Date: 20230418
  Serious: Yes (Disabling, Other)
  Sender: FDA-Public Use
  Company Number: None

PATIENT
  Age: 63 Year
  Sex: Female
  Weight: 102.6 kg

DRUGS (19)
  1. ARTIFICIAL TEARS LUBRICANT EYE DROPS (CARBOXYMETHYLCELLULOSE SODIUM) [Suspect]
     Active Substance: CARBOXYMETHYLCELLULOSE SODIUM
     Indication: Dry eye
     Dosage: OTHER QUANTITY : 1 DROP(S)?OTHER FREQUENCY : AS NEEDED?
     Route: 047
     Dates: start: 20230101, end: 20230106
  2. DULOXETINE [Concomitant]
     Active Substance: DULOXETINE
  3. LAMOTRIGINE [Concomitant]
     Active Substance: LAMOTRIGINE
  4. MEMANTINE [Concomitant]
     Active Substance: MEMANTINE
  5. MONTELUKAST [Concomitant]
     Active Substance: MONTELUKAST SODIUM
  6. PILOCARPINE [Concomitant]
     Active Substance: PILOCARPINE
  7. PREGABALIN [Concomitant]
  8. FAMOTIDINE [Concomitant]
     Active Substance: FAMOTIDINE
  9. MAXALT-MLT [Concomitant]
     Active Substance: RIZATRIPTAN BENZOATE
  10. RESTASIS [Concomitant]
     Active Substance: CYCLOSPORINE
  11. TRAMADOL [Concomitant]
     Active Substance: TRAMADOL
  12. ZYRTEC [Concomitant]
     Active Substance: CETIRIZINE HYDROCHLORIDE
  13. BREZTRI [Concomitant]
     Active Substance: BUDESONIDE\FORMOTEROL\GLYCOPYRROLATE
  14. FLAXSEE OIL GLUCOSAMINE CHONDROTIN [Concomitant]
  15. MAGNESIUM [Concomitant]
     Active Substance: MAGNESIUM
  16. GLYCINATE [Concomitant]
  17. VITAMINS [Concomitant]
     Active Substance: VITAMINS
  18. TUMERIC [Concomitant]
  19. AMINO ACIDS, SOURCE UNSPECIFIED [Concomitant]
     Active Substance: AMINO ACIDS, SOURCE UNSPECIFIED

REACTIONS (7)
  - Product container issue [None]
  - Recalled product administered [None]
  - Condition aggravated [None]
  - Eye infection [None]
  - Sinusitis [None]
  - Crying [None]
  - Lung disorder [None]

NARRATIVE: CASE EVENT DATE: 20230106
